FAERS Safety Report 7323426-5 (Version None)
Quarter: 2011Q1

REPORT INFORMATION
  Report Type: 
  Country: None (occurrence: None)
  Receive Date: 20110208
  Receipt Date: 20110124
  Transmission Date: 20110831
  Serious: Yes (Other)
  Sender: FDA-Public Use
  Company Number: 2011PROUSA00188

PATIENT
  Age: 74 Year
  Sex: Male
  Weight: 143.1 kg

DRUGS (10)
  1. PROVENGE [Suspect]
     Indication: PROSTATE CANCER METASTATIC
     Dosage: 250 ML, SINGLE, INTRAVENOUS
     Route: 042
     Dates: start: 20110113, end: 20110113
  2. FUROSEMIDE [Concomitant]
  3. HYDROCODONE [Concomitant]
  4. AMBIEN [Concomitant]
  5. VITAMIN D [Concomitant]
  6. ELIGARD [Concomitant]
  7. MAVIK [Concomitant]
  8. POTASSIUM CHLORIDE [Concomitant]
  9. VYTORIN (EXETIMIBE, SIMVASTATIN) [Concomitant]
  10. CASODEX [Concomitant]

REACTIONS (1)
  - THROMBOSIS [None]
